FAERS Safety Report 7553124-4 (Version None)
Quarter: 2011Q2

REPORT INFORMATION
  Report Type: 
  Country: None (occurrence: None)
  Receive Date: 20110616
  Receipt Date: 20110603
  Transmission Date: 20111010
  Serious: Yes (Hospitalization)
  Sender: FDA-Public Use
  Company Number: US-MYLANLABS-2011S1011881

PATIENT
  Age: 47 Year
  Sex: Male
  Weight: 94 kg

DRUGS (14)
  1. OXYCODONE HCL [Concomitant]
     Indication: PAIN
     Dosage: 5-10MG EVERY 4H AS NEEDED
  2. DIPHENHYDRAMINE HCL [Concomitant]
     Indication: PREMEDICATION
     Route: 042
  3. GRANISETRON [Concomitant]
     Indication: LUNG ADENOCARCINOMA
     Route: 042
  4. CIMETIDINE [Concomitant]
     Indication: PREMEDICATION
     Route: 042
  5. BEVACIZUMAB [Concomitant]
     Route: 042
  6. DARBEPOETIN ALFA [Concomitant]
     Route: 058
  7. CITALOPRAM HYDROBROMIDE [Concomitant]
  8. PACLITAXEL [Concomitant]
     Indication: LUNG ADENOCARCINOMA
     Route: 042
  9. WARFARIN SODIUM [Suspect]
     Indication: EMBOLISM VENOUS
     Route: 065
  10. ALPRAZOLAM [Concomitant]
     Dosage: TWICE DAILY AS NEEDED
  11. LOPERAMIDE [Concomitant]
     Indication: DIARRHOEA
     Dosage: AS NEEDED
  12. CARBOPLATIN [Concomitant]
     Indication: LUNG ADENOCARCINOMA
     Route: 042
  13. DEXAMETHASONE [Concomitant]
     Indication: PREMEDICATION
     Route: 042
  14. ERLOTINIB HYDROCHLORIDE [Interacting]
     Indication: LUNG ADENOCARCINOMA
     Route: 048

REACTIONS (3)
  - HAEMATOMA [None]
  - INTERNATIONAL NORMALISED RATIO INCREASED [None]
  - DRUG INTERACTION [None]
